FAERS Safety Report 4480425-9 (Version None)
Quarter: 2004Q4

REPORT INFORMATION
  Report Type: 
  Country: None (occurrence: None)
  Receive Date: 20041018
  Receipt Date: 20041006
  Transmission Date: 20050328
  Serious: Yes (Other)
  Sender: FDA-Public Use
  Company Number: MSTR-PR-0410S-0012

PATIENT
  Age: 90 Year
  Sex: Male

DRUGS (4)
  1. METASTRON [Suspect]
     Indication: METASTASES TO BONE
     Dosage: 122.1 MBQ, SINGLE DOSE, I.V.
     Route: 042
     Dates: start: 20040914, end: 20040914
  2. BICALUTAMIDE (CASODEX) [Concomitant]
  3. ZOLEDRONIC ACID (ZOMETA) [Concomitant]
  4. FOSAMAX [Concomitant]

REACTIONS (1)
  - JAUNDICE [None]
